FAERS Safety Report 20584476 (Version 1)
Quarter: 2022Q1

REPORT INFORMATION
  Report Type: Spontaneous
  Country: US (occurrence: US)
  Receive Date: 20220311
  Receipt Date: 20220311
  Transmission Date: 20220423
  Serious: No
  Sender: FDA-Public Use
  Company Number: US-AGILE THERAPEUTICS, INC.-US-AGI-2021-000137

PATIENT
  Age: 20 Year
  Sex: Female
  Weight: 77.098 kg

DRUGS (7)
  1. TWIRLA [Suspect]
     Active Substance: ETHINYL ESTRADIOL\LEVONORGESTREL
     Indication: Contraception
     Dosage: 120 MCG/DAY LEVONORGESTREL AND 30 MCG/DAY ETHINYL ESTRADIOL
     Route: 062
     Dates: start: 20211219
  2. CEPHALEXIN [Concomitant]
     Active Substance: CEPHALEXIN
     Indication: Acne
     Dosage: 1000 MILLIGRAM, QD
     Route: 065
     Dates: start: 2021
  3. SPIRONOLACTONE [Concomitant]
     Active Substance: SPIRONOLACTONE
     Indication: Acne
     Dosage: 150 MILLIGRAM, QD
     Route: 065
     Dates: start: 2021
  4. ZOLOFT [Concomitant]
     Active Substance: SERTRALINE HYDROCHLORIDE
     Indication: Anxiety
     Dosage: 150 MILLIGRAM, QD
     Route: 065
     Dates: start: 202109
  5. ZOLOFT [Concomitant]
     Active Substance: SERTRALINE HYDROCHLORIDE
     Indication: Depression
  6. TRAZODONE [Concomitant]
     Active Substance: TRAZODONE HYDROCHLORIDE
     Indication: Insomnia
     Dosage: 100 MILLIGRAM, QD
     Route: 065
     Dates: start: 202111
  7. KLONOPIN [Concomitant]
     Active Substance: CLONAZEPAM
     Indication: Anxiety
     Dosage: 0.5 MILLIGRAM, PRN
     Route: 065
     Dates: start: 202111

REACTIONS (1)
  - Product adhesion issue [Not Recovered/Not Resolved]

NARRATIVE: CASE EVENT DATE: 20211220
